FAERS Safety Report 4996109-4 (Version None)
Quarter: 2006Q2

REPORT INFORMATION
  Report Type: 
  Country: None (occurrence: None)
  Receive Date: 20060504
  Receipt Date: 20060421
  Transmission Date: 20061013
  Serious: Yes (Other)
  Sender: FDA-Public Use
  Company Number: 2006056968

PATIENT
  Age: 72 Year
  Sex: Female

DRUGS (3)
  1. LYRICA [Suspect]
     Indication: DIABETIC NEUROPATHY
     Dosage: 150 MG (1 D), ORAL
     Route: 048
     Dates: start: 20060117, end: 20060301
  2. ALL OTHER THERAPEUTIC PRODUCTS [Concomitant]
  3. ANTIHYPERTENSIVES [Concomitant]

REACTIONS (5)
  - DISORIENTATION [None]
  - FALL [None]
  - GAIT DISTURBANCE [None]
  - PSYCHOMOTOR HYPERACTIVITY [None]
  - VERTIGO [None]
